FAERS Safety Report 22101900 (Version 1)
Quarter: 2023Q1

REPORT INFORMATION
  Report Type: Spontaneous
  Country: FR (occurrence: FR)
  Receive Date: 20230316
  Receipt Date: 20230316
  Transmission Date: 20230418
  Serious: Yes (Other)
  Sender: FDA-Public Use
  Company Number: None

PATIENT
  Age: 17 Year
  Sex: Male

DRUGS (4)
  1. CLONAZEPAM [Suspect]
     Active Substance: CLONAZEPAM
  2. LYRICA [Suspect]
     Active Substance: PREGABALIN
  3. CANNABIS SATIVA SUBSP. INDICA TOP [Suspect]
     Active Substance: CANNABIS SATIVA SUBSP. INDICA TOP
  4. ALCOHOL [Suspect]
     Active Substance: ALCOHOL

REACTIONS (3)
  - Coma [Recovered/Resolved]
  - Drug abuse [Unknown]
  - Bladder dilatation [Recovered/Resolved]
